FAERS Safety Report 23420812 (Version 1)
Quarter: 2024Q1

REPORT INFORMATION
  Report Type: Spontaneous
  Country: JP (occurrence: JP)
  Receive Date: 20240119
  Receipt Date: 20240119
  Transmission Date: 20240410
  Serious: Yes (Hospitalization, Other)
  Sender: FDA-Public Use
  Company Number: JP-SUN PHARMACEUTICAL INDUSTRIES LTD-2024R1-426431

PATIENT
  Age: 49 Year
  Sex: Female
  Weight: 55.4 kg

DRUGS (4)
  1. ILUMYA [Suspect]
     Active Substance: TILDRAKIZUMAB-ASMN
     Indication: Psoriasis
     Dosage: 100 MILLIGRAM/DAY
     Route: 058
     Dates: start: 20211112
  2. ILUMYA [Suspect]
     Active Substance: TILDRAKIZUMAB-ASMN
     Dosage: 100 MILLIGRAM/DAY
     Route: 058
     Dates: start: 20211210
  3. MARDUOX Ointment [Concomitant]
     Indication: Psoriasis
     Dosage: 5 GRAM/DAY
     Route: 062
  4. CLOBETASOL PROPIONATE [Concomitant]
     Active Substance: CLOBETASOL PROPIONATE
     Indication: Psoriasis
     Dosage: 5 GRAM/DAY
     Route: 062

REACTIONS (1)
  - Alcoholism [Recovering/Resolving]

NARRATIVE: CASE EVENT DATE: 20211201
